FAERS Safety Report 5014934-0 (Version None)
Quarter: 2006Q2

REPORT INFORMATION
  Report Type: 
  Country: None (occurrence: None)
  Receive Date: 20060531
  Receipt Date: 20060215
  Transmission Date: 20061013
  Serious: Yes (Death, Life-Threatening, Hospitalization)
  Sender: FDA-Public Use
  Company Number: MY-ROCHE-436470

PATIENT
  Age: 45 Year
  Sex: Female

DRUGS (21)
  1. CAPECITABINE [Suspect]
     Indication: BREAST CANCER
     Route: 048
     Dates: start: 20060113
  2. IXABEPILONE [Suspect]
     Indication: BREAST CANCER
     Route: 042
     Dates: start: 20060113, end: 20060210
  3. VENTOLIN [Concomitant]
     Dates: start: 19920615
  4. NIFEDIPINE [Concomitant]
     Dates: start: 20020615
  5. DAONIL [Concomitant]
     Dates: start: 20051126
  6. METFORMIN HYDROCHLORIDE [Concomitant]
     Dates: start: 20051229
  7. BENADRYL [Concomitant]
     Dates: start: 20060112, end: 20060217
  8. GRANISETRON  HCL [Concomitant]
     Dosage: REPORTED AS PRE-MEDICATION.
     Dates: start: 20060210
  9. DIPHENHYDRAMINE HCL [Concomitant]
     Dosage: REPORTED AS PRE-MEDICATION.
     Dates: start: 20060210, end: 20060217
  10. RANITIDINE [Concomitant]
     Dosage: REPORTED AS PRE-MEDICATION.
     Dates: start: 20060210
  11. DEXAMETHASONE TAB [Concomitant]
     Dosage: REPORTED AS PRE-MEDICATION.
     Dates: start: 20060210, end: 20060330
  12. TRAMADOL HCL [Concomitant]
     Dates: start: 20060219, end: 20060330
  13. FERROUS SULFATE TAB [Concomitant]
     Dates: start: 20060218, end: 20060430
  14. SULTAMICILLIN [Concomitant]
     Dates: start: 20060225, end: 20060310
  15. PREDNISOLONE [Concomitant]
     Dates: start: 20060222, end: 20060223
  16. CAPTOPRIL [Concomitant]
     Dates: start: 20060302, end: 20060330
  17. CHLORPHENIRAMINE MALEATE [Concomitant]
     Dates: start: 20060226, end: 20060226
  18. LACTULOSE [Concomitant]
     Dates: start: 20060226, end: 20060227
  19. CYANOCOBALAMIN [Concomitant]
     Dates: start: 20060218, end: 20060330
  20. ASCORBIC ACID [Concomitant]
     Dates: start: 20060218, end: 20060330
  21. FOLIC ACID [Concomitant]
     Dates: start: 20060218, end: 20060330

REACTIONS (5)
  - ANAEMIA [None]
  - DYSPNOEA [None]
  - HYPERSENSITIVITY [None]
  - NEOPLASM MALIGNANT [None]
  - PLEURAL EFFUSION [None]
